FAERS Safety Report 9417190 (Version 1)
Quarter: 2013Q3

REPORT INFORMATION
  Report Type: Spontaneous
  Country: GB (occurrence: None)
  Receive Date: 20130722
  Receipt Date: 20130722
  Transmission Date: 20140515
  Serious: Yes (Other)
  Sender: FDA-Public Use
  Company Number: GER/UKI/13/0031955

PATIENT
  Age: 70 Year
  Sex: Male

DRUGS (5)
  1. OMEPRAZOLE (OMEPRAZOLE) [Suspect]
     Indication: PRODUCT USED FOR UNKNOWN INDICATION
     Route: 048
     Dates: start: 20130703, end: 20130703
  2. METFORMIN (METFORMIN) [Concomitant]
  3. NAPROXEN (NAPROXEN) [Concomitant]
  4. ANTICHOLESTEROL MEDICATIONS [Concomitant]
  5. BLOOD PRESSURE MEDICATION [Suspect]

REACTIONS (2)
  - Swelling face [None]
  - Lip swelling [None]
